FAERS Safety Report 4711416-8 (Version None)
Quarter: 2005Q3

REPORT INFORMATION
  Report Type: 
  Country: None (occurrence: None)
  Receive Date: 20050711
  Receipt Date: 20050627
  Transmission Date: 20060218
  Serious: Yes (Other)
  Sender: FDA-Public Use
  Company Number: 2005093136

PATIENT
  Age: 76 Year
  Sex: Male
  Weight: 70.7611 kg

DRUGS (3)
  1. LIPITOR [Suspect]
     Indication: BLOOD CHOLESTEROL INCREASED
     Dosage: 10 MG (10 MG, 1 IN 1D), ORAL
     Route: 048
  2. ASPIRIN [Concomitant]
  3. VITAMINS (VITAMINS0 [Concomitant]

REACTIONS (8)
  - ARTHROPATHY [None]
  - ASTHENIA [None]
  - ERYTHEMA [None]
  - FATIGUE [None]
  - MENISCUS LESION [None]
  - PAIN IN EXTREMITY [None]
  - PARAESTHESIA [None]
  - RAYNAUD'S PHENOMENON [None]
